FAERS Safety Report 18917305 (Version 3)
Quarter: 2021Q2

REPORT INFORMATION
  Report Type: Report from Study
  Country: AU (occurrence: AU)
  Receive Date: 20210219
  Receipt Date: 20210409
  Transmission Date: 20210717
  Serious: Yes (Death)
  Sender: FDA-Public Use
  Company Number: AU-PFIZER INC-2021163244

PATIENT
  Age: 72 Year
  Sex: Male

DRUGS (1)
  1. LIDOCAINE HCL [Suspect]
     Active Substance: LIDOCAINE HYDROCHLORIDE
     Indication: VENTRICULAR ARRHYTHMIA
     Dosage: 100 MG (INFUSION, LIGNOCAINE MADE UP AS A CLEAR LIQUID TO A VOLUME OF 10 ML.)

REACTIONS (3)
  - Atrioventricular block complete [Fatal]
  - Product selection error [Fatal]
  - Death [Fatal]
